FAERS Safety Report 7828606-8 (Version None)
Quarter: 2011Q4

REPORT INFORMATION
  Report Type: 
  Country: None (occurrence: None)
  Receive Date: 20111020
  Receipt Date: 20111012
  Transmission Date: 20120403
  Serious: No
  Sender: FDA-Public Use
  Company Number: US-PFIZER INC-2011184157

PATIENT
  Sex: Male
  Weight: 95.238 kg

DRUGS (2)
  1. IBUPROFEN (ADVIL) [Suspect]
     Dosage: 1600 MG, UNK
     Route: 048
     Dates: start: 20111012
  2. IBUPROFEN (ADVIL) [Suspect]
     Indication: PAIN
     Dosage: UNK
     Dates: start: 20070101

REACTIONS (3)
  - OVERDOSE [None]
  - SOMNOLENCE [None]
  - DRUG INEFFECTIVE [None]
